FAERS Safety Report 15497366 (Version 1)
Quarter: 2018Q4

REPORT INFORMATION
  Report Type: Other
  Country: BE (occurrence: BE)
  Receive Date: 20181015
  Receipt Date: 20181015
  Transmission Date: 20190205
  Serious: Yes (Life-Threatening, Other)
  Sender: FDA-Public Use
  Company Number: BE-APOTEX-2018AP022365

PATIENT
  Sex: Male
  Weight: 2.7 kg

DRUGS (15)
  1. ASPIRINE [Suspect]
     Active Substance: ASPIRIN
     Indication: FOETAL EXPOSURE DURING PREGNANCY
     Dosage: 100 MG, UNK
     Route: 064
  2. FERO-GRAD LP [Suspect]
     Active Substance: ASCORBIC ACID\FERROUS SULFATE
     Indication: FOETAL EXPOSURE DURING PREGNANCY
     Dosage: 1 DF, QD
     Route: 064
  3. TRECLINAX [Suspect]
     Active Substance: CLINDAMYCIN PHOSPHATE\TRETINOIN
     Indication: FOETAL EXPOSURE DURING PREGNANCY
     Dosage: UNK UNK, MATERNAL DOSE QD
     Route: 064
  4. ASPIRINE [Suspect]
     Active Substance: ASPIRIN
     Route: 064
  5. NASONEX [Suspect]
     Active Substance: MOMETASONE FUROATE
     Indication: FOETAL EXPOSURE DURING PREGNANCY
     Dosage: 1 DF, BID
     Route: 064
  6. PANTOPRAZOLE [Suspect]
     Active Substance: PANTOPRAZOLE
     Indication: FOETAL EXPOSURE DURING PREGNANCY
     Dosage: 1 DF, QD
     Route: 064
  7. ASPIRIN                            /00002701/ [Suspect]
     Active Substance: ASPIRIN
     Indication: FOETAL EXPOSURE DURING PREGNANCY
     Dosage: MATERNAL DOSE 100 MG
     Route: 064
  8. L-THYROXIN                         /00068001/ [Suspect]
     Active Substance: LEVOTHYROXINE
     Indication: FOETAL EXPOSURE DURING PREGNANCY
     Dosage: 50 MG, QD
     Route: 064
  9. AUGMENTIN [Suspect]
     Active Substance: AMOXICILLIN\CLAVULANATE POTASSIUM
     Indication: FOETAL EXPOSURE DURING PREGNANCY
     Dosage: 875 MG, TID
     Route: 064
  10. OMALIZUMAB. [Suspect]
     Active Substance: OMALIZUMAB
     Indication: FOETAL EXPOSURE DURING PREGNANCY
     Dosage: 300 MG, ONCE A MONTH
     Route: 064
  11. SERETIDE [Suspect]
     Active Substance: FLUTICASONE PROPIONATE\SALMETEROL XINAFOATE
     Indication: FOETAL EXPOSURE DURING PREGNANCY
     Dosage: 250 MG, BID
     Route: 064
  12. CLINDAMYCIN PHOSPHATE. [Suspect]
     Active Substance: CLINDAMYCIN PHOSPHATE
     Indication: FOETAL EXPOSURE DURING PREGNANCY
     Dosage: 1 DF, QD
     Route: 064
  13. CELESTONE [Suspect]
     Active Substance: BETAMETHASONE
     Indication: FOETAL EXPOSURE DURING PREGNANCY
     Dosage: UNK
     Route: 064
  14. VENTOLIN [Suspect]
     Active Substance: ALBUTEROL SULFATE
     Indication: FOETAL EXPOSURE DURING PREGNANCY
     Dosage: UNK UNK, PRN
     Route: 064
  15. AERIUS                             /01009701/ [Suspect]
     Active Substance: EBASTINE
     Indication: FOETAL EXPOSURE DURING PREGNANCY
     Dosage: 5 MG, TID
     Route: 064

REACTIONS (3)
  - Foetal exposure during pregnancy [Unknown]
  - Premature baby [Unknown]
  - Respiratory distress [Unknown]

NARRATIVE: CASE EVENT DATE: 20170112
